FAERS Safety Report 19719839 (Version 2)
Quarter: 2022Q1

REPORT INFORMATION
  Report Type: Spontaneous
  Country: DE (occurrence: DE)
  Receive Date: 20210818
  Receipt Date: 20220104
  Transmission Date: 20220423
  Serious: Yes (Hospitalization)
  Sender: FDA-Public Use
  Company Number: None

PATIENT
  Age: 50 Year
  Sex: Male

DRUGS (2)
  1. DOSTINEX [Suspect]
     Active Substance: CABERGOLINE
     Dosage: 5 MG, IS JUST BEING TAKEN WITH HALF A TABLET TWICE A WEEK
     Route: 048
  2. BROMOCRIPTIN ABZ [Concomitant]
     Dosage: IMPLEMENTED FROM LAST WEEK, AS NEEDED
     Route: 048

REACTIONS (7)
  - Pain [Unknown]
  - Fatigue [Unknown]
  - Chest pain [Unknown]
  - Headache [Unknown]
  - Musculoskeletal pain [Unknown]
  - Hyperhidrosis [Unknown]
  - Back pain [Unknown]
